FAERS Safety Report 9422959 (Version 1)
Quarter: 2013Q3

REPORT INFORMATION
  Report Type: Spontaneous
  Country: US (occurrence: US)
  Receive Date: 20130726
  Receipt Date: 20130726
  Transmission Date: 20140515
  Serious: Yes (Other)
  Sender: FDA-Public Use
  Company Number: US-ELI_LILLY_AND_COMPANY-US201307008797

PATIENT
  Sex: 0

DRUGS (4)
  1. GEMCITABINE HYDROCHLORIDE [Suspect]
     Indication: TRANSITIONAL CELL CARCINOMA
     Dosage: 900 MG/M2, EVERY 14 DAYS
  2. PACLITAXEL [Suspect]
     Indication: TRANSITIONAL CELL CARCINOMA
     Dosage: 135 MG/M2, 2/M
  3. DOXORUBICIN [Suspect]
     Indication: TRANSITIONAL CELL CARCINOMA
     Dosage: 40 MG/M2, 2/M
  4. PEGFILGRASTIM [Concomitant]

REACTIONS (1)
  - Mucosal inflammation [Unknown]
